FAERS Safety Report 9390032 (Version 1)
Quarter: 2013Q3

REPORT INFORMATION
  Report Type: Spontaneous
  Country: US (occurrence: US)
  Receive Date: 20130708
  Receipt Date: 20130708
  Transmission Date: 20140515
  Serious: No
  Sender: FDA-Public Use
  Company Number: US-AMGEN-USASP2013045502

PATIENT
  Age: 62 Year
  Sex: Female

DRUGS (7)
  1. ENBREL [Suspect]
     Indication: RHEUMATOID ARTHRITIS
     Dosage: UNK
     Route: 065
  2. ESTRADIOL [Concomitant]
     Dosage: UNK
  3. PROTONIX [Concomitant]
     Dosage: UNK
  4. METHOTREXATE [Concomitant]
     Dosage: UNK
  5. FOLIC ACID [Concomitant]
     Dosage: UNK
  6. ACTIVELLA [Concomitant]
     Dosage: UNK
  7. NORETHINDRONE                      /00044901/ [Concomitant]
     Dosage: UNK

REACTIONS (3)
  - Pruritus [Unknown]
  - Swelling [Unknown]
  - Secretion discharge [Unknown]
